FAERS Safety Report 9424451 (Version 1)
Quarter: 2013Q3

REPORT INFORMATION
  Report Type: Spontaneous
  Country: IT (occurrence: IT)
  Receive Date: 20130729
  Receipt Date: 20130729
  Transmission Date: 20140515
  Serious: Yes (Death)
  Sender: FDA-Public Use
  Company Number: IT-MPIJNJ-2013-02867

PATIENT
  Sex: 0

DRUGS (3)
  1. VELCADE [Suspect]
     Indication: AMYLOIDOSIS
     Route: 065
  2. MELPHALAN [Concomitant]
     Indication: AMYLOIDOSIS
  3. DEXAMETHASONE [Concomitant]
     Indication: AMYLOIDOSIS

REACTIONS (2)
  - Death [Fatal]
  - Off label use [Unknown]
